FAERS Safety Report 7835904-0 (Version None)
Quarter: 2011Q4

REPORT INFORMATION
  Report Type: 
  Country: None (occurrence: None)
  Receive Date: 20111024
  Receipt Date: 20101117
  Transmission Date: 20120403
  Serious: No
  Sender: FDA-Public Use
  Company Number: US-ABBOTT-10P-163-0686259-00

PATIENT
  Sex: Female

DRUGS (1)
  1. LUPRON [Suspect]
     Indication: PRODUCT USED FOR UNKNOWN INDICATION

REACTIONS (8)
  - DEPRESSED MOOD [None]
  - STRESS [None]
  - INJECTION SITE HAEMORRHAGE [None]
  - MOOD SWINGS [None]
  - ANGER [None]
  - INJECTION SITE ERYTHEMA [None]
  - MENSTRUAL DISORDER [None]
  - FATIGUE [None]
